FAERS Safety Report 7178947-5 (Version None)
Quarter: 2010Q4

REPORT INFORMATION
  Report Type: 
  Country: None (occurrence: None)
  Receive Date: 20101221
  Receipt Date: 20100802
  Transmission Date: 20110411
  Serious: Yes (Hospitalization)
  Sender: FDA-Public Use
  Company Number: SE-SANOFI-AVENTIS-2010SA045175

PATIENT
  Age: 80 Year
  Sex: Male

DRUGS (5)
  1. ALFUZOSIN HYDROCHLORIDE [Suspect]
     Indication: URINARY TRACT DISORDER
     Route: 048
     Dates: end: 20100124
  2. SIMVASTATIN [Concomitant]
     Route: 065
  3. PROPRANOLOL [Concomitant]
     Route: 065
  4. TROMBYL [Concomitant]
     Route: 065
  5. TRIATEC [Concomitant]
     Route: 065

REACTIONS (4)
  - CHEST PAIN [None]
  - FALL [None]
  - HYPOTENSION [None]
  - PAIN IN EXTREMITY [None]
